FAERS Safety Report 9135138 (Version 1)
Quarter: 2013Q1

REPORT INFORMATION
  Report Type: Report from Study
  Country: US (occurrence: US)
  Receive Date: 20130304
  Receipt Date: 20130304
  Transmission Date: 20140127
  Serious: No
  Sender: FDA-Public Use
  Company Number: US-VERTEX PHARMACEUTICALS INC.-2013-002910

PATIENT
  Sex: Female
  Weight: 49 kg

DRUGS (12)
  1. VX-950 (TELAPREVIR) [Suspect]
     Indication: HEPATITIS C
     Dosage: 750 MG, TID
     Route: 048
  2. RIBAVIRIN [Suspect]
     Indication: HEPATITIS C
     Dosage: 200 MG, UNK
  3. PEGASYS [Suspect]
     Indication: HEPATITIS C
  4. GABAPENTIN [Concomitant]
     Dosage: 100 MG, UNK
  5. IRON [Concomitant]
     Dosage: 28 MG, UNK
  6. MULTIVITAMIN [Concomitant]
  7. CALCIUM +D [Concomitant]
  8. PRILOSEC [Concomitant]
     Dosage: 20 MG, UNK
  9. PROPRANOLOL [Concomitant]
     Dosage: 60 MG, UNK
  10. FLECTOR DIS [Concomitant]
     Dosage: 1.3 %, UNK
  11. VOLTAREN [Concomitant]
     Dosage: 0.1 %, UNK
     Route: 047
  12. VISTARIL [Concomitant]
     Dosage: 25 MG, UNK

REACTIONS (3)
  - Oropharyngeal pain [Unknown]
  - Dysphonia [Unknown]
  - Pain in extremity [Unknown]
